FAERS Safety Report 19196494 (Version 2)
Quarter: 2021Q2

REPORT INFORMATION
  Report Type: Spontaneous
  Country: PT (occurrence: PT)
  Receive Date: 20210429
  Receipt Date: 20210511
  Transmission Date: 20210717
  Serious: Yes (Hospitalization, Other)
  Sender: FDA-Public Use
  Company Number: PT-GLAXOSMITHKLINE-PTCH2021EME022462

PATIENT
  Age: 55 Year
  Sex: Female

DRUGS (1)
  1. DICLOFENAC [Suspect]
     Active Substance: DICLOFENAC
     Indication: PRODUCT USED FOR UNKNOWN INDICATION
     Dosage: 75 MG
     Route: 048

REACTIONS (18)
  - Rash maculo-papular [Recovering/Resolving]
  - Lip oedema [Recovering/Resolving]
  - Pruritus [Recovering/Resolving]
  - Face oedema [Unknown]
  - Anaphylactic reaction [Recovering/Resolving]
  - Chest pain [Unknown]
  - Dyspnoea [Recovering/Resolving]
  - Syncope [Unknown]
  - Loss of consciousness [Unknown]
  - Hypotension [Recovering/Resolving]
  - Tongue oedema [Unknown]
  - Erythema [Recovering/Resolving]
  - Kounis syndrome [Unknown]
  - Troponin increased [Recovered/Resolved]
  - Skin lesion [Recovering/Resolving]
  - Eyelid oedema [Unknown]
  - Wheezing [Unknown]
  - Drug hypersensitivity [Recovering/Resolving]
